FAERS Safety Report 8426127-5 (Version None)
Quarter: 2012Q2

REPORT INFORMATION
  Report Type: 
  Country: None (occurrence: None)
  Receive Date: 20120611
  Receipt Date: 20120530
  Transmission Date: 20120825
  Serious: Yes (Hospitalization)
  Sender: FDA-Public Use
  Company Number: US-JNJFOC-20120404702

PATIENT
  Sex: Female
  Weight: 49.9 kg

DRUGS (9)
  1. NUVIGIL [Concomitant]
     Indication: MENTAL IMPAIRMENT
     Dosage: ONCE A DAY, HIGH DOSES
     Route: 065
  2. NEURONTIN [Concomitant]
     Indication: HEADACHE
     Dosage: HIGH DOSES, TWICE A DAY
     Route: 065
  3. ALCOHOL (WINE) [Suspect]
     Indication: PRODUCT USED FOR UNKNOWN INDICATION
     Route: 048
  4. WELLBUTRIN [Concomitant]
     Indication: DEPRESSION
     Dosage: HIGH DOSES
     Route: 065
  5. NUCYNTA ER [Suspect]
     Indication: HEADACHE
     Dosage: ONCE DAILY
     Route: 048
     Dates: start: 20120323, end: 20120328
  6. NUCYNTA ER [Suspect]
     Route: 048
     Dates: start: 20120405, end: 20120406
  7. OXYCODONE HCL [Suspect]
     Indication: HEADACHE
     Dosage: ONCE A DAY
     Route: 048
  8. XANAX [Suspect]
     Indication: ANXIETY
     Dosage: ONCE A DAY, HIGH DOSES
     Route: 065
  9. PERCOCET [Concomitant]
     Indication: HEADACHE
     Dosage: 1 TABLET 2-3 /DAY
     Route: 065

REACTIONS (5)
  - ARTHRALGIA [None]
  - DELUSION [None]
  - INTENTIONAL OVERDOSE [None]
  - HALLUCINATION [None]
  - MYALGIA [None]
